FAERS Safety Report 7618776-9 (Version None)
Quarter: 2011Q3

REPORT INFORMATION
  Report Type: 
  Country: None (occurrence: None)
  Receive Date: 20110718
  Receipt Date: 20110705
  Transmission Date: 20111222
  Serious: Yes (Other)
  Sender: FDA-Public Use
  Company Number: GR-JNJFOC-20110701938

PATIENT
  Age: 5 Decade
  Sex: Male

DRUGS (3)
  1. REMICADE [Suspect]
     Indication: PSORIASIS
     Route: 042
     Dates: start: 20110601
  2. LEVOCETIRIZINE DIHYDROCHLORIDE [Concomitant]
     Indication: PROPHYLAXIS
     Dosage: GIVEN ONE DAY PRIOR TO INFUSION
  3. REMICADE [Suspect]
     Route: 042
     Dates: start: 20090101

REACTIONS (8)
  - TACHYCARDIA [None]
  - PALPITATIONS [None]
  - HYPOAESTHESIA ORAL [None]
  - INFUSION RELATED REACTION [None]
  - URTICARIA [None]
  - MEMORY IMPAIRMENT [None]
  - RASH GENERALISED [None]
  - TINNITUS [None]
